FAERS Safety Report 9139322 (Version 1)
Quarter: 2013Q1

REPORT INFORMATION
  Report Type: Spontaneous
  Country: US (occurrence: US)
  Receive Date: 20130305
  Receipt Date: 20130305
  Transmission Date: 20140127
  Serious: No
  Sender: FDA-Public Use
  Company Number: US-ENDO PHARMACEUTICALS INC.-SPLN20110014

PATIENT
  Age: 13 Year
  Sex: Male
  Weight: 35.6 kg

DRUGS (2)
  1. SUPPRELIN LA [Suspect]
     Indication: GENDER IDENTITY DISORDER
     Route: 058
     Dates: start: 20110121, end: 20110211
  2. SUPPRELIN LA [Suspect]
     Route: 058
     Dates: start: 20110311, end: 20110328

REACTIONS (5)
  - Implant site cellulitis [Recovered/Resolved]
  - Abscess sterile [Unknown]
  - Device expulsion [Recovered/Resolved]
  - Implant site infection [Recovered/Resolved]
  - Device extrusion [Recovered/Resolved]
